FAERS Safety Report 19687039 (Version 1)
Quarter: 2021Q3

REPORT INFORMATION
  Report Type: Spontaneous
  Country: BR (occurrence: BR)
  Receive Date: 20210811
  Receipt Date: 20210811
  Transmission Date: 20211014
  Serious: Yes (Hospitalization)
  Sender: FDA-Public Use
  Company Number: BR-PFIZER INC-2017548411

PATIENT
  Sex: Female

DRUGS (3)
  1. ZITROMAX [Suspect]
     Active Substance: AZITHROMYCIN
     Indication: SINUSITIS
     Dosage: UNK
  2. ZITROMAX [Suspect]
     Active Substance: AZITHROMYCIN
     Indication: HYPERSENSITIVITY
  3. STARCH [Suspect]
     Active Substance: STARCH

REACTIONS (8)
  - Reaction to excipient [Unknown]
  - Oropharyngeal pain [Unknown]
  - Diarrhoea [Unknown]
  - Off label use [Unknown]
  - Pancreatitis [Unknown]
  - Vomiting [Unknown]
  - Swelling [Unknown]
  - Hypersensitivity [Unknown]
